FAERS Safety Report 13702318 (Version 1)
Quarter: 2017Q2

REPORT INFORMATION
  Report Type: Spontaneous
  Country: US (occurrence: US)
  Receive Date: 20170629
  Receipt Date: 20170629
  Transmission Date: 20170830
  Serious: No
  Sender: FDA-Public Use
  Company Number: US-GLAXOSMITHKLINE-US2017099712

PATIENT
  Age: 76 Year
  Sex: Female

DRUGS (3)
  1. CODEINE [Concomitant]
     Active Substance: CODEINE
  2. ADVAIR DISKUS [Suspect]
     Active Substance: FLUTICASONE PROPIONATE\SALMETEROL XINAFOATE
     Indication: CHRONIC OBSTRUCTIVE PULMONARY DISEASE
     Dosage: 1 PUFF(S), BID
     Route: 055
  3. TYLENOL ARTHRITIS PAIN [Concomitant]
     Active Substance: ACETAMINOPHEN

REACTIONS (3)
  - Product label confusion [Unknown]
  - Fall [Recovered/Resolved]
  - Rib fracture [Recovering/Resolving]

NARRATIVE: CASE EVENT DATE: 20170601
